FAERS Safety Report 20335657 (Version 1)
Quarter: 2022Q1

REPORT INFORMATION
  Report Type: Spontaneous
  Country: GB (occurrence: GB)
  Receive Date: 20220114
  Receipt Date: 20220114
  Transmission Date: 20220423
  Serious: Yes (Hospitalization, Other)
  Sender: FDA-Public Use
  Company Number: None

PATIENT
  Age: 35 Year
  Sex: Male

DRUGS (6)
  1. OLANZAPINE [Suspect]
     Active Substance: OLANZAPINE
     Indication: Product used for unknown indication
     Dosage: UNK
  2. DEXAMETHASONE [Concomitant]
     Active Substance: DEXAMETHASONE
     Dosage: UNK UNK, BID
  3. DIAZEPAM [Concomitant]
     Active Substance: DIAZEPAM
     Dosage: 5 MILLIGRAM, TID
  4. LORAZEPAM [Concomitant]
     Active Substance: LORAZEPAM
     Dosage: 1 MILLIGRAM, PRN
  5. PREDNISOLONE [Concomitant]
     Active Substance: PREDNISOLONE
     Dosage: UNK 1 DROP QDS (RIGHT EYE)
  6. BECLOMETHASONE DIPROPIONATE [Concomitant]
     Active Substance: BECLOMETHASONE DIPROPIONATE
     Dosage: UNK, TID () 2 PUFFS THREE TIMES DAILY 1 X 200 DOSE)

REACTIONS (7)
  - Hyperthermia [Unknown]
  - Coma scale abnormal [Unknown]
  - Neuroleptic malignant syndrome [Recovered/Resolved]
  - Mental status changes [Unknown]
  - Muscle rigidity [Unknown]
  - Autonomic nervous system imbalance [Unknown]
  - Blood pressure fluctuation [Unknown]
